FAERS Safety Report 25475150 (Version 1)
Quarter: 2025Q2

REPORT INFORMATION
  Report Type: Spontaneous
  Country: FR (occurrence: FR)
  Receive Date: 20250624
  Receipt Date: 20250624
  Transmission Date: 20250717
  Serious: Yes (Other)
  Sender: MYLAN
  Company Number: None

PATIENT
  Age: 67 Year
  Sex: Female

DRUGS (52)
  1. ETOPOSIDE [Suspect]
     Active Substance: ETOPOSIDE
     Indication: Bone marrow conditioning regimen
     Dates: start: 202012, end: 202012
  2. ETOPOSIDE [Suspect]
     Active Substance: ETOPOSIDE
     Route: 042
     Dates: start: 202012, end: 202012
  3. ETOPOSIDE [Suspect]
     Active Substance: ETOPOSIDE
     Route: 042
     Dates: start: 202012, end: 202012
  4. ETOPOSIDE [Suspect]
     Active Substance: ETOPOSIDE
     Dates: start: 202012, end: 202012
  5. OXALIPLATIN [Suspect]
     Active Substance: OXALIPLATIN
     Indication: Follicular lymphoma recurrent
  6. OXALIPLATIN [Suspect]
     Active Substance: OXALIPLATIN
     Route: 042
  7. OXALIPLATIN [Suspect]
     Active Substance: OXALIPLATIN
     Route: 042
  8. OXALIPLATIN [Suspect]
     Active Substance: OXALIPLATIN
  9. KYMRIAH [Suspect]
     Active Substance: TISAGENLECLEUCEL
     Indication: Diffuse large B-cell lymphoma
     Dates: start: 20220412, end: 20220412
  10. KYMRIAH [Suspect]
     Active Substance: TISAGENLECLEUCEL
     Route: 042
     Dates: start: 20220412, end: 20220412
  11. KYMRIAH [Suspect]
     Active Substance: TISAGENLECLEUCEL
     Route: 042
     Dates: start: 20220412, end: 20220412
  12. KYMRIAH [Suspect]
     Active Substance: TISAGENLECLEUCEL
     Dates: start: 20220412, end: 20220412
  13. CARMUSTINE [Suspect]
     Active Substance: CARMUSTINE
     Indication: Bone marrow conditioning regimen
     Dates: start: 202012, end: 2020
  14. CARMUSTINE [Suspect]
     Active Substance: CARMUSTINE
     Route: 042
     Dates: start: 202012, end: 2020
  15. CARMUSTINE [Suspect]
     Active Substance: CARMUSTINE
     Route: 042
     Dates: start: 202012, end: 2020
  16. CARMUSTINE [Suspect]
     Active Substance: CARMUSTINE
     Dates: start: 202012, end: 2020
  17. CYTARABINE [Suspect]
     Active Substance: CYTARABINE
     Indication: Product used for unknown indication
     Dates: start: 202012, end: 202012
  18. CYTARABINE [Suspect]
     Active Substance: CYTARABINE
     Route: 042
     Dates: start: 202012, end: 202012
  19. CYTARABINE [Suspect]
     Active Substance: CYTARABINE
     Route: 042
     Dates: start: 202012, end: 202012
  20. CYTARABINE [Suspect]
     Active Substance: CYTARABINE
     Dates: start: 202012, end: 202012
  21. MELPHALAN [Suspect]
     Active Substance: MELPHALAN
     Indication: Bone marrow conditioning regimen
     Dates: start: 202012, end: 202012
  22. MELPHALAN [Suspect]
     Active Substance: MELPHALAN
     Route: 042
     Dates: start: 202012, end: 202012
  23. MELPHALAN [Suspect]
     Active Substance: MELPHALAN
     Route: 042
     Dates: start: 202012, end: 202012
  24. MELPHALAN [Suspect]
     Active Substance: MELPHALAN
     Dates: start: 202012, end: 202012
  25. CYCLOPHOSPHAMIDE [Suspect]
     Active Substance: CYCLOPHOSPHAMIDE
     Indication: Follicular lymphoma
  26. CYCLOPHOSPHAMIDE [Suspect]
     Active Substance: CYCLOPHOSPHAMIDE
     Route: 042
  27. CYCLOPHOSPHAMIDE [Suspect]
     Active Substance: CYCLOPHOSPHAMIDE
     Route: 042
  28. CYCLOPHOSPHAMIDE [Suspect]
     Active Substance: CYCLOPHOSPHAMIDE
  29. VINCRISTINE SULFATE [Suspect]
     Active Substance: VINCRISTINE SULFATE
     Indication: Follicular lymphoma
  30. VINCRISTINE SULFATE [Suspect]
     Active Substance: VINCRISTINE SULFATE
     Route: 042
  31. VINCRISTINE SULFATE [Suspect]
     Active Substance: VINCRISTINE SULFATE
     Route: 042
  32. VINCRISTINE SULFATE [Suspect]
     Active Substance: VINCRISTINE SULFATE
  33. RITUXIMAB [Suspect]
     Active Substance: RITUXIMAB
     Indication: Follicular lymphoma
  34. RITUXIMAB [Suspect]
     Active Substance: RITUXIMAB
     Route: 042
  35. RITUXIMAB [Suspect]
     Active Substance: RITUXIMAB
     Route: 042
  36. RITUXIMAB [Suspect]
     Active Substance: RITUXIMAB
  37. CYTARABINE [Suspect]
     Active Substance: CYTARABINE
     Indication: Follicular lymphoma recurrent
  38. CYTARABINE [Suspect]
     Active Substance: CYTARABINE
     Route: 042
  39. CYTARABINE [Suspect]
     Active Substance: CYTARABINE
     Route: 042
  40. CYTARABINE [Suspect]
     Active Substance: CYTARABINE
  41. DOXORUBICIN HYDROCHLORIDE [Suspect]
     Active Substance: DOXORUBICIN HYDROCHLORIDE
     Indication: Follicular lymphoma
  42. DOXORUBICIN HYDROCHLORIDE [Suspect]
     Active Substance: DOXORUBICIN HYDROCHLORIDE
     Route: 042
  43. DOXORUBICIN HYDROCHLORIDE [Suspect]
     Active Substance: DOXORUBICIN HYDROCHLORIDE
     Route: 042
  44. DOXORUBICIN HYDROCHLORIDE [Suspect]
     Active Substance: DOXORUBICIN HYDROCHLORIDE
  45. PREDNISONE [Concomitant]
     Active Substance: PREDNISONE
  46. PREDNISONE [Concomitant]
     Active Substance: PREDNISONE
     Route: 065
  47. PREDNISONE [Concomitant]
     Active Substance: PREDNISONE
     Route: 065
  48. PREDNISONE [Concomitant]
     Active Substance: PREDNISONE
  49. DEXAMETHASONE [Concomitant]
     Active Substance: DEXAMETHASONE
  50. DEXAMETHASONE [Concomitant]
     Active Substance: DEXAMETHASONE
     Route: 065
  51. DEXAMETHASONE [Concomitant]
     Active Substance: DEXAMETHASONE
     Route: 065
  52. DEXAMETHASONE [Concomitant]
     Active Substance: DEXAMETHASONE

REACTIONS (1)
  - Myelodysplastic syndrome [Not Recovered/Not Resolved]

NARRATIVE: CASE EVENT DATE: 20240521
